FAERS Safety Report 20966669 (Version 1)
Quarter: 2022Q2

REPORT INFORMATION
  Report Type: Spontaneous
  Country: TR (occurrence: TR)
  Receive Date: 20220616
  Receipt Date: 20220616
  Transmission Date: 20220721
  Serious: Yes (Life-Threatening, Hospitalization, Other)
  Sender: FDA-Public Use
  Company Number: TR-BAYER-2022P004835

PATIENT

DRUGS (1)
  1. EYLEA [Suspect]
     Active Substance: AFLIBERCEPT
     Indication: Product used for unknown indication
     Dosage: 1 DF, ONCE, BILATERAL INJECTION, SOLUTION FOR INJECTION
     Route: 031
     Dates: start: 20220606, end: 20220606

REACTIONS (5)
  - Anaphylactic shock [Unknown]
  - Dizziness [Unknown]
  - Hypotension [Unknown]
  - Acute pulmonary oedema [Unknown]
  - Blood pressure increased [Unknown]

NARRATIVE: CASE EVENT DATE: 20220606
